FAERS Safety Report 6814320-4 (Version None)
Quarter: 2010Q3

REPORT INFORMATION
  Report Type: 
  Country: None (occurrence: None)
  Receive Date: 20100702
  Receipt Date: 20100622
  Transmission Date: 20110219
  Serious: Yes (Hospitalization)
  Sender: FDA-Public Use
  Company Number: US-SANOFI-AVENTIS-2010SA036486

PATIENT
  Age: 63 Year
  Sex: Male
  Weight: 93 kg

DRUGS (2)
  1. LOVENOX [Suspect]
     Indication: THROMBOSIS PROPHYLAXIS
     Route: 058
     Dates: start: 20100527, end: 20100617
  2. LOVENOX [Suspect]
     Route: 058
     Dates: start: 20100622

REACTIONS (6)
  - ABDOMINAL PAIN [None]
  - BLOOD CREATININE INCREASED [None]
  - CHROMATURIA [None]
  - PYREXIA [None]
  - URINARY RETENTION [None]
  - URINARY TRACT INFECTION [None]
